FAERS Safety Report 6296913-9 (Version None)
Quarter: 2009Q3

REPORT INFORMATION
  Report Type: 
  Country: None (occurrence: None)
  Receive Date: 20090727
  Receipt Date: 20090722
  Transmission Date: 20100115
  Serious: Yes (Hospitalization)
  Sender: FDA-Public Use
  Company Number: THYM-1001118

PATIENT
  Age: 27 Year
  Sex: Male

DRUGS (6)
  1. THYMOGLOBULIN [Suspect]
     Indication: APLASTIC ANAEMIA
     Dosage: INTRAVENOUS
     Route: 042
     Dates: start: 20090218, end: 20090223
  2. CYCLOSPORINE [Suspect]
     Indication: APLASTIC ANAEMIA
     Dates: start: 20090218
  3. ITRACONAZOLE [Concomitant]
  4. OMEPRAZOLE [Concomitant]
  5. ACYCLOVIR [Concomitant]
  6. NEOMYCIN (NEOMYCIN) [Concomitant]

REACTIONS (3)
  - DIARRHOEA [None]
  - FEBRILE NEUTROPENIA [None]
  - MALAISE [None]
